FAERS Safety Report 8852395 (Version 1)
Quarter: 2012Q4

REPORT INFORMATION
  Report Type: 
  Country: NL (occurrence: NL)
  Receive Date: 20121022
  Receipt Date: 20121022
  Transmission Date: 20130627
  Serious: Yes (Death, Other)
  Sender: FDA-Public Use
  Company Number: PHHY2012NL093478

PATIENT
  Sex: Male

DRUGS (1)
  1. METOPROLOL [Suspect]
     Indication: LONG QT SYNDROME

REACTIONS (2)
  - Sudden cardiac death [Fatal]
  - Syncope [Unknown]
